FAERS Safety Report 6773249-0 (Version None)
Quarter: 2010Q2

REPORT INFORMATION
  Report Type: 
  Country: None (occurrence: None)
  Receive Date: 20100616
  Receipt Date: 20100324
  Transmission Date: 20101027
  Serious: Yes (Hospitalization, Other)
  Sender: FDA-Public Use
  Company Number: US-ABBOTT-10P-163-0633808-00

PATIENT
  Age: 73 Year
  Sex: Female

DRUGS (2)
  1. TRILIPIX [Suspect]
     Indication: DRUG USE FOR UNKNOWN INDICATION
     Dates: end: 20100201
  2. DECLINED TO PROVIDE LONG LIST OF MEDICATIONS [Concomitant]

REACTIONS (1)
  - PANCREATITIS ACUTE [None]
